FAERS Safety Report 5031721-8 (Version None)
Quarter: 2006Q2

REPORT INFORMATION
  Report Type: 
  Country: None (occurrence: None)
  Receive Date: 20060616
  Receipt Date: 20060530
  Transmission Date: 20061013
  Serious: Yes (Hospitalization, Other)
  Sender: FDA-Public Use
  Company Number: US200603000284

PATIENT
  Age: 44 Year
  Sex: Female
  Weight: 80.3 kg

DRUGS (11)
  1. ZYPREXA [Suspect]
     Indication: BIPOLAR DISORDER
     Dosage: SEE IMAGE
     Dates: start: 20000301, end: 20020301
  2. ZYPREXA [Suspect]
     Indication: BIPOLAR DISORDER
     Dosage: SEE IMAGE
     Dates: start: 20020301, end: 20020501
  3. ZYPREXA [Suspect]
     Indication: BIPOLAR DISORDER
     Dosage: SEE IMAGE
     Dates: start: 20020501, end: 20030401
  4. PROZAC [Concomitant]
  5. LORAZEPAM [Concomitant]
  6. PAXIL [Concomitant]
  7. EFFEXOR [Concomitant]
  8. HYDROXYZINE [Concomitant]
  9. TRAZODONE HCL [Concomitant]
  10. AMITRIPTYLINE HCL [Concomitant]
  11. PREDNISOLONE [Concomitant]

REACTIONS (11)
  - BLOOD CHOLESTEROL ABNORMAL [None]
  - CARDIAC DISORDER [None]
  - CATHETERISATION CARDIAC [None]
  - DIABETES MELLITUS [None]
  - DIABETIC COMPLICATION [None]
  - HYPERTENSION [None]
  - INTESTINAL RESECTION [None]
  - LACTIC ACIDOSIS [None]
  - METABOLIC ACIDOSIS [None]
  - MYOCARDIAL ISCHAEMIA [None]
  - WEIGHT INCREASED [None]
